FAERS Safety Report 9274083 (Version 2)
Quarter: 2013Q2

REPORT INFORMATION
  Report Type: Spontaneous
  Country: US (occurrence: US)
  Receive Date: 20130506
  Receipt Date: 20130604
  Transmission Date: 20140414
  Serious: No
  Sender: FDA-Public Use
  Company Number: US-AMGEN-USASP2013029878

PATIENT
  Age: 55 Year
  Sex: Female
  Weight: 60.51 kg

DRUGS (1)
  1. ENBREL [Suspect]
     Indication: RHEUMATOID ARTHRITIS
     Dosage: 50 MG, ONCE A WEEK
     Route: 058
     Dates: start: 20080730

REACTIONS (2)
  - Muscle spasms [Recovered/Resolved]
  - Joint swelling [Recovered/Resolved]
